FAERS Safety Report 23506653 (Version 1)
Quarter: 2024Q1

REPORT INFORMATION
  Report Type: Report from Study
  Country: US (occurrence: US)
  Receive Date: 20240209
  Receipt Date: 20240209
  Transmission Date: 20240410
  Serious: Yes (Other)
  Sender: FDA-Public Use
  Company Number: US-EXELIXIS-CABO-24073596

PATIENT
  Sex: Male
  Weight: 113.38 kg

DRUGS (1)
  1. CABOMETYX [Suspect]
     Active Substance: CABOZANTINIB S-MALATE
     Indication: Thyroid cancer
     Dosage: 20 MG, QD
     Route: 048
     Dates: start: 20230113

REACTIONS (4)
  - Dysphagia [Unknown]
  - Gastrointestinal tube insertion [Unknown]
  - Oropharyngeal discomfort [Unknown]
  - Aphasia [Unknown]
